FAERS Safety Report 25961276 (Version 1)
Quarter: 2025Q4

REPORT INFORMATION
  Report Type: Spontaneous
  Country: EU (occurrence: EU)
  Receive Date: 20251027
  Receipt Date: 20251027
  Transmission Date: 20260117
  Serious: Yes (Life-Threatening, Hospitalization, Other)
  Sender: STRIDES
  Company Number: EU-STRIDES PHARMA UK LTD.-2025SP013193

PATIENT
  Age: 14 Year
  Sex: Male
  Weight: 57 kg

DRUGS (7)
  1. IBUPROFEN [Suspect]
     Active Substance: IBUPROFEN
     Indication: Myopericarditis
     Dosage: 30 MILLIGRAM/KILOGRAM, QD
     Route: 065
  2. COLCHICINE [Suspect]
     Active Substance: COLCHICINE
     Indication: Myopericarditis
     Dosage: 0.5 MILLIGRAM, QD
     Route: 065
  3. FUROSEMIDE [Suspect]
     Active Substance: FUROSEMIDE
     Indication: Myopericarditis
     Dosage: UNK
     Route: 065
  4. IMMUNE GLOBULIN NOS [Suspect]
     Active Substance: IMMUNE GLOBULIN NOS
     Indication: Myopericarditis
     Dosage: 80 GRAM IN 24 HOURS
     Route: 042
  5. EPINEPHRINE [Suspect]
     Active Substance: EPINEPHRINE
     Indication: Myopericarditis
     Dosage: UNK
     Route: 065
  6. MILRINONE [Suspect]
     Active Substance: MILRINONE
     Indication: Myopericarditis
     Dosage: UNK
     Route: 065
  7. LEVOSIMENDAN [Suspect]
     Active Substance: LEVOSIMENDAN
     Indication: Myopericarditis
     Dosage: UNK
     Route: 065

REACTIONS (2)
  - Condition aggravated [Recovering/Resolving]
  - Off label use [Unknown]
